FAERS Safety Report 11076484 (Version 1)
Quarter: 2015Q2

REPORT INFORMATION
  Report Type: Spontaneous
  Country: SI (occurrence: SI)
  Receive Date: 20150429
  Receipt Date: 20150429
  Transmission Date: 20150821
  Serious: Yes (Hospitalization)
  Sender: FDA-Public Use
  Company Number: SI-SA-2015SA030693

PATIENT
  Age: 55 Year
  Sex: Female
  Weight: 74 kg

DRUGS (8)
  1. ACETYLSALICYLIC ACID [Concomitant]
     Active Substance: ASPIRIN
     Dates: start: 201503
  2. SERTRALINE [Concomitant]
     Active Substance: SERTRALINE HYDROCHLORIDE
     Dates: start: 201012
  3. ZOFENOPRIL [Concomitant]
     Active Substance: ZOFENOPRIL
     Dates: start: 2011
  4. ROSUVASTATIN [Concomitant]
     Active Substance: ROSUVASTATIN
     Dates: start: 2014
  5. FABRAZYME [Suspect]
     Active Substance: AGALSIDASE BETA
     Indication: FABRY^S DISEASE
     Route: 042
     Dates: start: 20141103
  6. BISOPROLOL [Concomitant]
     Active Substance: BISOPROLOL
     Dates: start: 2012
  7. ENOXAPARIN [Concomitant]
     Active Substance: ENOXAPARIN
  8. ZEMPLAR [Concomitant]
     Active Substance: PARICALCITOL
     Dates: start: 201207

REACTIONS (2)
  - Chills [Recovered/Resolved]
  - Arthrodesis [Recovered/Resolved]

NARRATIVE: CASE EVENT DATE: 201502
